FAERS Safety Report 8164312-0 (Version None)
Quarter: 2012Q1

REPORT INFORMATION
  Report Type: 
  Country: None (occurrence: None)
  Receive Date: 20120224
  Receipt Date: 20111227
  Transmission Date: 20120608
  Serious: No
  Sender: FDA-Public Use
  Company Number: US-MYLANLABS-2011S1026505

PATIENT
  Sex: Male

DRUGS (2)
  1. DIOVAN [Suspect]
  2. ATENOLOL [Suspect]

REACTIONS (2)
  - PARAESTHESIA [None]
  - HYPOAESTHESIA [None]
